FAERS Safety Report 4881470-1 (Version None)
Quarter: 2005Q4

REPORT INFORMATION
  Report Type: 
  Country: None (occurrence: None)
  Receive Date: 20051209
  Receipt Date: 20050705
  Transmission Date: 20060501
  Serious: Yes (Hospitalization)
  Sender: FDA-Public Use
  Company Number: USA-2005-0020702

PATIENT
  Age: 77 Year
  Sex: Female

DRUGS (5)
  1. OXYCONTIN [Suspect]
     Indication: PAIN
     Dosage: 10 MG, UNK, UKNOWN
     Route: 065
  2. VICODIN [Suspect]
     Route: 065
  3. NORCO [Suspect]
     Route: 065
  4. METAMUCIL [Concomitant]
  5. MILK OF MAGNESIA TAB [Concomitant]

REACTIONS (5)
  - ABDOMINAL PAIN [None]
  - CONSTIPATION [None]
  - DRUG WITHDRAWAL SYNDROME [None]
  - DYSPNOEA [None]
  - VOMITING [None]
